FAERS Safety Report 6241744-9 (Version None)
Quarter: 2009Q2

REPORT INFORMATION
  Report Type: 
  Country: None (occurrence: None)
  Receive Date: 20090623
  Receipt Date: 20070403
  Transmission Date: 20091009
  Serious: Yes (Hospitalization, Other)
  Sender: FDA-Public Use
  Company Number: JP-ROCHE-491246

PATIENT
  Age: 50 Year
  Sex: Female

DRUGS (2)
  1. INTERFERON ALFA [Suspect]
     Dosage: DOSE: 9 MILLION UNITS
     Route: 065
     Dates: start: 19920813, end: 19920827
  2. INTERFERON ALFA [Suspect]
     Dosage: POST DISCHARGE THERAPY
     Route: 065

REACTIONS (7)
  - ANXIETY [None]
  - DEPRESSION [None]
  - INFECTION [None]
  - INSOMNIA [None]
  - IRRITABILITY [None]
  - SUICIDE ATTEMPT [None]
  - THERMAL BURN [None]
